FAERS Safety Report 20127677 (Version 1)
Quarter: 2021Q4

REPORT INFORMATION
  Report Type: Spontaneous
  Country: LT (occurrence: LT)
  Receive Date: 20211129
  Receipt Date: 20211129
  Transmission Date: 20220303
  Serious: Yes (Life-Threatening, Other)
  Sender: FDA-Public Use
  Company Number: LT-PFIZER INC-202101048421

PATIENT
  Age: 18 Year
  Sex: Female

DRUGS (6)
  1. VANCOMYCIN [Suspect]
     Active Substance: VANCOMYCIN
     Indication: Postpartum sepsis
     Dosage: 2 GRAM, QD,1 G, EVERY 12 HOURS
     Route: 042
  2. VANCOMYCIN [Suspect]
     Active Substance: VANCOMYCIN
     Indication: Disseminated intravascular coagulation
     Dosage: 2 GRAM, QD,1 G, EVERY 12 HOURS
     Route: 042
  3. VANCOMYCIN [Suspect]
     Active Substance: VANCOMYCIN
     Dosage: 3 GRAM, QD,1.5 G, EVERY 12 HOURS
  4. MEROPENEM [Suspect]
     Active Substance: MEROPENEM
     Indication: Disseminated intravascular coagulation
     Dosage: 3 GRAM, QD,1 G, EVERY 8 HOURS
  5. MEROPENEM [Suspect]
     Active Substance: MEROPENEM
     Indication: Postpartum sepsis
     Dosage: 2 GRAM, QD,1 G, EVERY 12 HOURS
     Route: 042
  6. CEFUROXIME [Concomitant]
     Active Substance: CEFUROXIME
     Indication: Pyrexia
     Dosage: 2250 MILLIGRAM, QD,750 MG, EVERY 8 HOURS
     Route: 042

REACTIONS (2)
  - Drug ineffective [Recovering/Resolving]
  - Maternal exposure during pregnancy [Unknown]
